FAERS Safety Report 25299367 (Version 2)
Quarter: 2025Q2

REPORT INFORMATION
  Report Type: Spontaneous
  Country: US (occurrence: US)
  Receive Date: 20250512
  Receipt Date: 20250521
  Transmission Date: 20250716
  Serious: Yes (Life-Threatening, Hospitalization)
  Sender: TEVA
  Company Number: US-TEVA-VS-3329208

PATIENT
  Age: 75 Year
  Sex: Male

DRUGS (6)
  1. HYDROMORPHONE [Suspect]
     Active Substance: HYDROMORPHONE
     Indication: Pain
     Route: 065
  2. CARBIDOPA AND LEVODOPA [Interacting]
     Active Substance: CARBIDOPA\LEVODOPA
     Indication: Parkinson^s disease
     Route: 048
  3. CARBIDOPA AND LEVODOPA [Interacting]
     Active Substance: CARBIDOPA\LEVODOPA
     Indication: Parkinson^s disease
     Route: 050
  4. CARBIDOPA AND LEVODOPA [Interacting]
     Active Substance: CARBIDOPA\LEVODOPA
     Indication: Parkinson^s disease
     Route: 048
  5. ACETAMINOPHEN [Interacting]
     Active Substance: ACETAMINOPHEN
     Indication: Pyrexia
     Route: 065
  6. PANTOPRAZOLE [Interacting]
     Active Substance: PANTOPRAZOLE
     Indication: Stress ulcer
     Route: 065

REACTIONS (7)
  - Drug interaction [Unknown]
  - Unresponsive to stimuli [Recovering/Resolving]
  - Parkinsonism hyperpyrexia syndrome [Recovering/Resolving]
  - Rebound effect [Unknown]
  - Product dose omission issue [Unknown]
  - Muscle rigidity [Unknown]
  - Drug ineffective [Unknown]
